FAERS Safety Report 13407027 (Version 1)
Quarter: 2017Q2

REPORT INFORMATION
  Report Type: Spontaneous
  Country: US (occurrence: US)
  Receive Date: 20170405
  Receipt Date: 20170405
  Transmission Date: 20170830
  Serious: Yes (Hospitalization)
  Sender: FDA-Public Use
  Company Number: US-IMPAX LABORATORIES, INC-2017-IPXL-00791

PATIENT
  Age: 28 Year
  Sex: Female

DRUGS (1)
  1. ADRENACLICK [Suspect]
     Active Substance: EPINEPHRINE
     Indication: SUICIDE ATTEMPT
     Dosage: 1 MG, SINGLE
     Route: 065

REACTIONS (8)
  - ECG signs of myocardial ischaemia [Unknown]
  - Pulmonary oedema [Unknown]
  - Hypotension [Unknown]
  - Hypertension [Unknown]
  - Troponin increased [Unknown]
  - Intentional overdose [Unknown]
  - Left ventricular dysfunction [Unknown]
  - Tachycardia [Unknown]
